FAERS Safety Report 21757787 (Version 2)
Quarter: 2023Q4

REPORT INFORMATION
  Report Type: Other
  Country: US (occurrence: None)
  Receive Date: 20221221
  Receipt Date: 20231220
  Transmission Date: 20240110
  Serious: Yes (Other)
  Sender: FDA-Public Use
  Company Number: US-ROCHE-3207664

PATIENT
  Age: 34 Year
  Sex: Female

DRUGS (1)
  1. ALTEPLASE [Suspect]
     Active Substance: ALTEPLASE
     Indication: Middle cerebral artery stroke
     Dosage: RECEIVED WITHIN 1 HOUR OF HER ARRIVAL TO THE EMERGENCY DEPARTMENT
     Route: 042

REACTIONS (1)
  - Haemorrhage intracranial [Recovered/Resolved]
